FAERS Safety Report 5562396-7 (Version None)
Quarter: 2007Q4

REPORT INFORMATION
  Report Type: 
  Country: None (occurrence: None)
  Receive Date: 20071215
  Receipt Date: 20070525
  Transmission Date: 20080405
  Serious: No
  Sender: FDA-Public Use
  Company Number: US-AMGEN-US226373

PATIENT
  Sex: Female

DRUGS (4)
  1. ARANESP [Suspect]
     Indication: RENAL FAILURE CHRONIC
     Dates: start: 20060101
  2. LASIX [Concomitant]
  3. TRAMADOL HCL [Concomitant]
  4. CELEBREX [Concomitant]

REACTIONS (4)
  - ASTHENIA [None]
  - GAIT DISTURBANCE [None]
  - OEDEMA PERIPHERAL [None]
  - PAIN IN EXTREMITY [None]
